FAERS Safety Report 10644729 (Version 5)
Quarter: 2017Q4

REPORT INFORMATION
  Report Type: Report from Study
  Country: US (occurrence: US)
  Receive Date: 20141211
  Receipt Date: 20171220
  Transmission Date: 20180320
  Serious: Yes (Hospitalization, Other)
  Sender: FDA-Public Use
  Company Number: US-ROCHE-1504631

PATIENT
  Age: 4 Month
  Sex: Male
  Weight: 13.7 kg

DRUGS (11)
  1. VITAMIN A PALMITATE [Concomitant]
     Active Substance: VITAMIN A PALMITATE
     Route: 048
  2. NUTROPIN AQ [Suspect]
     Active Substance: SOMATROPIN
     Indication: PRADER-WILLI SYNDROME
     Route: 058
     Dates: start: 20141118
  3. VITAMIN C [Concomitant]
     Active Substance: ASCORBIC ACID
     Route: 048
  4. AMOXIL [Concomitant]
     Active Substance: AMOXICILLIN
     Route: 048
  5. VITAMIN D3 [Concomitant]
     Active Substance: CHOLECALCIFEROL
     Route: 048
  6. NUTROPIN AQ [Suspect]
     Active Substance: SOMATROPIN
     Dosage: NUSPIN 10, 7 INJECTIONS PER WEEK, DISPENSED 1 MONTH SUPPLY AND REFILLED 11 TIMES
     Route: 058
     Dates: start: 20141210
  7. KEFLEX [Concomitant]
     Active Substance: CEPHALEXIN
  8. HYDROCORTISONE. [Concomitant]
     Active Substance: HYDROCORTISONE
     Indication: RESPIRATORY DISTRESS
     Dosage: 1 TIME DOSE
     Route: 030
     Dates: start: 20141205, end: 20141205
  9. NUTROPIN AQ [Suspect]
     Active Substance: SOMATROPIN
     Route: 058
     Dates: start: 20141110
  10. NUTROPIN AQ [Suspect]
     Active Substance: SOMATROPIN
     Indication: GROWTH HORMONE DEFICIENCY
     Route: 058
     Dates: start: 20141204
  11. POLYTRIM [Concomitant]
     Active Substance: POLYMYXIN B SULFATE\TRIMETHOPRIM SULFATE

REACTIONS (22)
  - Choking [Recovering/Resolving]
  - Respiratory syncytial virus infection [Recovered/Resolved]
  - Glycosylated haemoglobin decreased [Unknown]
  - Upper-airway cough syndrome [Unknown]
  - Pruritus [Unknown]
  - Blood albumin increased [Unknown]
  - Nail bed disorder [Unknown]
  - Dyspnoea [Recovering/Resolving]
  - Nasopharyngitis [Not Recovered/Not Resolved]
  - Hypotonia [Unknown]
  - Rhinorrhoea [Not Recovered/Not Resolved]
  - Productive cough [Not Recovered/Not Resolved]
  - Influenza [Unknown]
  - Sleep apnoea syndrome [Unknown]
  - Retrognathia [Unknown]
  - Upper respiratory tract congestion [Unknown]
  - Rash pruritic [Unknown]
  - Breath sounds abnormal [Unknown]
  - Blood urea nitrogen/creatinine ratio increased [Unknown]
  - Vitamin B12 increased [Unknown]
  - Lethargy [Recovering/Resolving]
  - Upper airway obstruction [Unknown]

NARRATIVE: CASE EVENT DATE: 20141119
